FAERS Safety Report 7272977-0 (Version None)
Quarter: 2011Q1

REPORT INFORMATION
  Report Type: 
  Country: None (occurrence: None)
  Receive Date: 20110203
  Receipt Date: 20110124
  Transmission Date: 20110831
  Serious: Yes (Congenital Anomaly)
  Sender: FDA-Public Use
  Company Number: A0899016A

PATIENT
  Sex: Female
  Weight: 3.1 kg

DRUGS (5)
  1. EPIVIR [Suspect]
     Indication: HIV INFECTION
     Dosage: 1TAB PER DAY
     Route: 064
     Dates: start: 20100811
  2. MACROBID [Concomitant]
  3. REYATAZ [Suspect]
     Indication: HIV INFECTION
     Dosage: 300MGD PER DAY
     Route: 064
     Dates: start: 20100811
  4. FLUCONAZOLE [Concomitant]
     Route: 064
  5. NORVIR [Suspect]
     Indication: HIV INFECTION
     Dosage: 100MGD PER DAY
     Route: 064
     Dates: start: 20100811

REACTIONS (2)
  - DRUG EXPOSURE DURING PREGNANCY [None]
  - POLYDACTYLY [None]
